FAERS Safety Report 17373341 (Version 2)
Quarter: 2020Q1

REPORT INFORMATION
  Report Type: Spontaneous
  Country: JP (occurrence: JP)
  Receive Date: 20200205
  Receipt Date: 20200316
  Transmission Date: 20200409
  Serious: Yes (Hospitalization, Other)
  Sender: FDA-Public Use
  Company Number: NVSJ2020JP001179

PATIENT
  Age: 3 Year
  Sex: Male
  Weight: 14 kg

DRUGS (2)
  1. NEORAL [Suspect]
     Active Substance: CYCLOSPORINE
     Dosage: 6 MG/KG
     Route: 048
  2. NEORAL [Suspect]
     Active Substance: CYCLOSPORINE
     Indication: NEPHROTIC SYNDROME
     Dosage: 0.4 ML, BID
     Route: 048

REACTIONS (4)
  - Leukoencephalopathy [Unknown]
  - Subdural haematoma [Unknown]
  - Somnolence [Unknown]
  - Decreased appetite [Unknown]
